FAERS Safety Report 9329425 (Version 1)
Quarter: 2013Q2

REPORT INFORMATION
  Report Type: Spontaneous
  Country: US (occurrence: US)
  Receive Date: 20130604
  Receipt Date: 20130604
  Transmission Date: 20140414
  Serious: Yes (Hospitalization)
  Sender: FDA-Public Use
  Company Number: US-SANOFI-AVENTIS-2012SA092802

PATIENT
  Age: 65 Year
  Sex: Male
  Weight: 102.58 kg

DRUGS (12)
  1. SOLOSTAR [Suspect]
     Indication: TYPE 2 DIABETES MELLITUS
     Dates: start: 2007
  2. SOLOSTAR [Suspect]
     Indication: TYPE 2 DIABETES MELLITUS
     Dates: start: 2007
  3. LANTUS SOLOSTAR [Suspect]
     Indication: TYPE 2 DIABETES MELLITUS
     Dosage: DOSE:45 UNIT(S)
     Route: 058
     Dates: start: 2007
  4. LANTUS SOLOSTAR [Suspect]
     Indication: TYPE 2 DIABETES MELLITUS
     Dosage: DOSE:45 UNIT(S)
     Route: 058
     Dates: start: 2007
  5. ACYCLOVIR [Concomitant]
     Route: 048
  6. ALLOPURINOL [Concomitant]
     Route: 048
  7. CARDIZEM [Concomitant]
     Route: 048
  8. GABAPENTIN [Concomitant]
     Dosage: TWO CAPSULES EVERY EIGHT HOURS.
     Route: 048
  9. HYDRALAZINE [Concomitant]
     Route: 048
  10. LISINOPRIL [Concomitant]
     Route: 048
  11. METOPROLOL TARTRATE [Concomitant]
     Route: 048
  12. POTASSIUM CHLORIDE [Concomitant]
     Route: 048

REACTIONS (1)
  - Hyperglycaemia [Unknown]
